FAERS Safety Report 15504570 (Version 1)
Quarter: 2018Q4

REPORT INFORMATION
  Report Type: Spontaneous
  Country: NZ (occurrence: NZ)
  Receive Date: 20181016
  Receipt Date: 20181016
  Transmission Date: 20190205
  Serious: Yes (Other)
  Sender: FDA-Public Use
  Company Number: None

PATIENT
  Age: 7 Day
  Sex: Male
  Weight: 5.8 kg

DRUGS (6)
  1. COCONUT OIL [Concomitant]
     Active Substance: COCONUT OIL
  2. FATTY CREAM EMULSION [Concomitant]
  3. HYDROCORTISONE. [Concomitant]
     Active Substance: HYDROCORTISONE
  4. VASELINE PURE [Concomitant]
     Active Substance: PETROLATUM
  5. VITAMIN K [Suspect]
     Active Substance: PHYTONADIONE
     Indication: PRODUCT USED FOR UNKNOWN INDICATION
     Dosage: ?          QUANTITY:1 INJECTION(S);OTHER FREQUENCY:ONE TIME;?
     Dates: start: 20180621, end: 20180621
  6. SORBELENE [Concomitant]

REACTIONS (2)
  - Eczema [None]
  - Rash neonatal [None]

NARRATIVE: CASE EVENT DATE: 20180628
